FAERS Safety Report 4822288-5 (Version None)
Quarter: 2005Q4

REPORT INFORMATION
  Report Type: 
  Country: None (occurrence: None)
  Receive Date: 20051103
  Receipt Date: 20051017
  Transmission Date: 20060501
  Serious: Yes (Other)
  Sender: FDA-Public Use
  Company Number: USA0506100504

PATIENT
  Age: 72 Year
  Sex: Female
  Weight: 70 kg

DRUGS (1)
  1. HUMALOG MIX 75/25 [Suspect]
     Indication: DIABETES MELLITUS
     Dosage: 45 U DAY
     Dates: start: 20010101

REACTIONS (25)
  - ANOREXIA [None]
  - ARTERIAL OCCLUSIVE DISEASE [None]
  - ARTHRALGIA [None]
  - BLOOD GLUCOSE INCREASED [None]
  - BODY TEMPERATURE INCREASED [None]
  - CARDIAC DISORDER [None]
  - CAROTID ARTERY OCCLUSION [None]
  - CARPAL TUNNEL DECOMPRESSION [None]
  - CHILLS [None]
  - DIFFICULTY IN WALKING [None]
  - FEELING ABNORMAL [None]
  - INCREASED TENDENCY TO BRUISE [None]
  - INFLUENZA [None]
  - INJECTION SITE PAIN [None]
  - MALAISE [None]
  - MEMORY IMPAIRMENT [None]
  - NASOPHARYNGITIS [None]
  - ORAL INTAKE REDUCED [None]
  - OSTEOARTHRITIS [None]
  - OSTEOPOROSIS [None]
  - PHARMACEUTICAL PRODUCT COMPLAINT [None]
  - PRODUCTIVE COUGH [None]
  - SINUS OPERATION [None]
  - WEIGHT DECREASED [None]
  - WEIGHT INCREASED [None]
